FAERS Safety Report 6856233-8 (Version None)
Quarter: 2010Q2

REPORT INFORMATION
  Report Type: 
  Country: None (occurrence: None)
  Receive Date: 20100630
  Receipt Date: 20100414
  Transmission Date: 20101027
  Serious: No
  Sender: FDA-Public Use
  Company Number: 1000013194

PATIENT
  Age: 51 Year
  Sex: Female

DRUGS (5)
  1. BYSTOLIC [Suspect]
     Indication: CHEST PAIN
     Dosage: 5 MG (5 MG,1 IN 1 D), ORAL
     Route: 048
     Dates: start: 20091001, end: 20091001
  2. CYMBALTA [Concomitant]
  3. WELLBUTURIN [Concomitant]
  4. OMEPRAZOLE [Concomitant]
  5. LASIX [Concomitant]

REACTIONS (2)
  - FEELING ABNORMAL [None]
  - LETHARGY [None]
